FAERS Safety Report 17305225 (Version 2)
Quarter: 2020Q1

REPORT INFORMATION
  Report Type: Spontaneous
  Country: GB (occurrence: GB)
  Receive Date: 20200123
  Receipt Date: 20200320
  Transmission Date: 20200409
  Serious: Yes (Other)
  Sender: FDA-Public Use
  Company Number: GB-ASTRAZENECA-2020SE06926

PATIENT
  Age: 62 Year
  Sex: Female
  Weight: 112 kg

DRUGS (20)
  1. GABAPENTIN. [Concomitant]
     Active Substance: GABAPENTIN
     Dates: start: 20170302
  2. CITALOPRAM [Concomitant]
     Active Substance: CITALOPRAM HYDROBROMIDE
     Dates: start: 20170302
  3. EPADERM [Concomitant]
     Active Substance: MINERAL OIL\PETROLATUM\WAX, EMULSIFYING
     Dates: start: 20170106
  4. DICLOFENAC [Concomitant]
     Active Substance: DICLOFENAC
     Dates: start: 20160708
  5. MAGNESIUM HYDROXIDE. [Concomitant]
     Active Substance: MAGNESIUM HYDROXIDE
     Indication: CONSTIPATION
     Dosage: AS REQUIRED
     Dates: start: 20151104
  6. BECONASE AQ [Concomitant]
     Active Substance: BECLOMETHASONE DIPROPIONATE MONOHYDRATE
     Dosage: 2 DF, BD, EACH NOSTRIL INITIALLY, MAY REDUCE TO 1 DF BD, IF SYMPTOMS CONTROLLED.
     Dates: start: 20160628
  7. LACTULOSE. [Concomitant]
     Active Substance: LACTULOSE
     Dosage: 5 - 15ML TWICE A DAY AS REQUIRED
     Dates: start: 20151104
  8. ORLISTAT. [Concomitant]
     Active Substance: ORLISTAT
     Dates: start: 20170302
  9. DAPAGLIFLOZIN. [Suspect]
     Active Substance: DAPAGLIFLOZIN
     Dosage: 10.0MG UNKNOWN
     Route: 048
  10. SIMVASTATIN. [Concomitant]
     Active Substance: SIMVASTATIN
     Dates: start: 20170215
  11. MOMETASONE [Concomitant]
     Active Substance: MOMETASONE
     Dosage: TO BE APPLIED AT NIGHT
     Dates: start: 20170504
  12. PARACETAMOL [Concomitant]
     Active Substance: ACETAMINOPHEN
     Dosage: 1 TO 2 CAPSULES UP TO FOUR TIMES DAILY AS REQUIRED 500MG
     Dates: start: 20150707
  13. TRAMADOL. [Concomitant]
     Active Substance: TRAMADOL
     Dosage: 1 OR 2 CAPSULES 4 HOURLY. MAXIMUM 8 PER 24 HOURS
     Dates: start: 20170302
  14. RAMIPRIL. [Concomitant]
     Active Substance: RAMIPRIL
     Dates: start: 20170302
  15. SITAGLIPTIN [Concomitant]
     Active Substance: SITAGLIPTIN
     Dates: start: 20170215
  16. CANESTEN [Concomitant]
     Active Substance: CLOTRIMAZOLE
     Dosage: APPLY IN THE MORNING
     Dates: start: 20170504
  17. ALPHOSYL 2 IN 1 [Concomitant]
     Dosage: USE DAILY
     Dates: start: 20160628
  18. METFORMIN [Concomitant]
     Active Substance: METFORMIN HYDROCHLORIDE
     Dates: start: 20170215
  19. CASSIA [Concomitant]
     Indication: CONSTIPATION
     Dates: start: 20170302
  20. LORATADINE. [Concomitant]
     Active Substance: LORATADINE
     Dosage: WHEN REQUIRED
     Dates: start: 20170302

REACTIONS (2)
  - Vulvovaginal discomfort [Not Recovered/Not Resolved]
  - Vulvovaginal pruritus [Recovering/Resolving]

NARRATIVE: CASE EVENT DATE: 20160725
